FAERS Safety Report 14750044 (Version 1)
Quarter: 2018Q2

REPORT INFORMATION
  Report Type: Spontaneous
  Country: US (occurrence: US)
  Receive Date: 20180412
  Receipt Date: 20180412
  Transmission Date: 20180711
  Serious: Yes (Other)
  Sender: FDA-Public Use
  Company Number: US-ZYDUS-019709

PATIENT
  Age: 10 Year
  Sex: Male

DRUGS (10)
  1. DOXEPIN [Suspect]
     Active Substance: DOXEPIN
     Indication: ABNORMAL BEHAVIOUR
     Route: 065
  2. DEXMETHYLPHENIDATE/DEXMETHYLPHENIDATE HYDROCHLORI [Suspect]
     Active Substance: DEXMETHYLPHENIDATE HYDROCHLORIDE
     Indication: ABNORMAL BEHAVIOUR
     Route: 065
  3. LAMOTRIGINE. [Suspect]
     Active Substance: LAMOTRIGINE
     Indication: ABNORMAL BEHAVIOUR
     Route: 065
  4. GUANFACINE/GUANFACINE HYDROCHLORIDE [Suspect]
     Active Substance: GUANFACINE HYDROCHLORIDE
     Indication: ABNORMAL BEHAVIOUR
     Route: 065
  5. DOXEPIN [Suspect]
     Active Substance: DOXEPIN
     Indication: SEIZURE
     Route: 065
  6. DEXMETHYLPHENIDATE/DEXMETHYLPHENIDATE HYDROCHLORI [Suspect]
     Active Substance: DEXMETHYLPHENIDATE HYDROCHLORIDE
     Indication: SEIZURE
     Route: 065
  7. QUETIAPINE/QUETIAPINE FUMARATE [Suspect]
     Active Substance: QUETIAPINE FUMARATE
     Indication: ABNORMAL BEHAVIOUR
     Route: 065
  8. QUETIAPINE/QUETIAPINE FUMARATE [Suspect]
     Active Substance: QUETIAPINE FUMARATE
     Indication: SEIZURE
     Route: 065
  9. GUANFACINE/GUANFACINE HYDROCHLORIDE [Suspect]
     Active Substance: GUANFACINE HYDROCHLORIDE
     Indication: SEIZURE
     Route: 065
  10. LAMOTRIGINE. [Suspect]
     Active Substance: LAMOTRIGINE
     Indication: SEIZURE
     Route: 065

REACTIONS (10)
  - Electrocardiogram T wave inversion [Recovered/Resolved]
  - Transaminases increased [Recovered/Resolved]
  - Status epilepticus [Recovered/Resolved]
  - Brugada syndrome [Unknown]
  - Electrocardiogram QT prolonged [Recovered/Resolved]
  - Multi-organ disorder [Unknown]
  - Ventricular fibrillation [Unknown]
  - Electrocardiogram ST segment elevation [Recovered/Resolved]
  - Electrocardiogram QRS complex prolonged [Recovered/Resolved]
  - Pyrexia [Unknown]
